FAERS Safety Report 13292946 (Version 6)
Quarter: 2018Q2

REPORT INFORMATION
  Report Type: Report from Study
  Country: ZA (occurrence: ZA)
  Receive Date: 20170303
  Receipt Date: 20180525
  Transmission Date: 20180711
  Serious: Yes (Hospitalization, Other)
  Sender: FDA-Public Use
  Company Number: ZA-BRISTOL-MYERS SQUIBB COMPANY-BMS-2017-017192

PATIENT
  Age: 58 Year
  Sex: Female

DRUGS (3)
  1. ABATACEPT [Suspect]
     Active Substance: ABATACEPT
     Indication: PRODUCT USED FOR UNKNOWN INDICATION
     Dosage: 750 MG, QMO
     Route: 042
     Dates: start: 201508, end: 20171213
  2. ABATACEPT [Suspect]
     Active Substance: ABATACEPT
     Indication: RHEUMATOID ARTHRITIS
     Dosage: 1000 MG, QMO
     Route: 042
     Dates: start: 201508, end: 20171213
  3. ABATACEPT [Suspect]
     Active Substance: ABATACEPT
     Indication: RHEUMATOID ARTHRITIS
     Dosage: 125 MG, QWK
     Route: 058
     Dates: start: 20180118

REACTIONS (11)
  - Musculoskeletal pain [Unknown]
  - Visual impairment [Unknown]
  - Calcium deficiency [Unknown]
  - Road traffic accident [Unknown]
  - Diarrhoea [Unknown]
  - Skin cancer [Unknown]
  - Spinal operation [Recovered/Resolved]
  - Cardiac flutter [Unknown]
  - Arthralgia [Unknown]
  - Abdominal distension [Unknown]
  - Fatigue [Unknown]

NARRATIVE: CASE EVENT DATE: 20170321
